FAERS Safety Report 9444300 (Version 1)
Quarter: 2013Q3

REPORT INFORMATION
  Report Type: Spontaneous
  Country: US (occurrence: US)
  Receive Date: 20130807
  Receipt Date: 20130807
  Transmission Date: 20140515
  Serious: No
  Sender: FDA-Public Use
  Company Number: US-JNJFOC-20130716146

PATIENT
  Age: 43 Year
  Sex: Female
  Weight: 54.43 kg

DRUGS (3)
  1. DURAGESIC [Suspect]
     Indication: BACK DISORDER
     Route: 062
     Dates: start: 20130719
  2. NORCO [Concomitant]
     Route: 048
  3. XANAX [Concomitant]
     Route: 048

REACTIONS (2)
  - Wrong technique in drug usage process [Not Recovered/Not Resolved]
  - Product quality issue [Not Recovered/Not Resolved]
